FAERS Safety Report 24773496 (Version 1)
Quarter: 2024Q4

REPORT INFORMATION
  Report Type: Spontaneous
  Country: FR (occurrence: FR)
  Receive Date: 20241225
  Receipt Date: 20241225
  Transmission Date: 20250115
  Serious: Yes (Hospitalization, Other)
  Sender: HIKMA
  Company Number: None

PATIENT
  Age: 64 Year
  Sex: Male

DRUGS (12)
  1. CARBOPLATIN [Suspect]
     Active Substance: CARBOPLATIN
     Indication: Squamous cell carcinoma of lung
     Dosage: C1, ~CYCLICAL
     Route: 042
     Dates: start: 20240725, end: 20240725
  2. CARBOPLATIN [Suspect]
     Active Substance: CARBOPLATIN
     Dosage: C3, ~CYCLICAL
     Route: 042
     Dates: start: 20240906, end: 20240906
  3. CARBOPLATIN [Suspect]
     Active Substance: CARBOPLATIN
     Dosage: C4, ~CYCLICAL
     Route: 042
     Dates: start: 20241001, end: 20241001
  4. CARBOPLATIN [Suspect]
     Active Substance: CARBOPLATIN
     Dosage: C5, ~CYCLICAL
     Route: 042
     Dates: start: 20241023, end: 20241023
  5. KEYTRUDA [Suspect]
     Active Substance: PEMBROLIZUMAB
     Indication: Squamous cell carcinoma of lung
     Dosage: C3, ~CYCLICAL
     Route: 042
     Dates: start: 20240906, end: 20240906
  6. KEYTRUDA [Suspect]
     Active Substance: PEMBROLIZUMAB
     Dosage: C4, ~CYCLICAL
     Route: 042
     Dates: start: 20241001, end: 20241001
  7. KEYTRUDA [Suspect]
     Active Substance: PEMBROLIZUMAB
     Dosage: C5, ~CYCLICAL
     Route: 042
     Dates: start: 20241023, end: 20241023
  8. TAXOL [Suspect]
     Active Substance: PACLITAXEL
     Dosage: C3, ~CYCLICAL
     Route: 042
     Dates: start: 20240906, end: 20240906
  9. TAXOL [Suspect]
     Active Substance: PACLITAXEL
     Dosage: C4, ~CYCLICAL
     Route: 042
     Dates: start: 20241001, end: 20241001
  10. TAXOL [Suspect]
     Active Substance: PACLITAXEL
     Dosage: C5, ~CYCLICAL
     Route: 042
     Dates: start: 20241023, end: 20241023
  11. TAXOL [Suspect]
     Active Substance: PACLITAXEL
     Indication: Squamous cell carcinoma of lung
     Dosage: C1, ~CYCLICAL
     Route: 042
     Dates: start: 20240725, end: 20240725
  12. TAXOL [Suspect]
     Active Substance: PACLITAXEL
     Dosage: C2, ~CYCLICAL
     Route: 042
     Dates: start: 20240816, end: 20240816

REACTIONS (3)
  - Skin reaction [Recovered/Resolved]
  - Hypotension [Recovered/Resolved]
  - Hyperthermia [Recovered/Resolved]

NARRATIVE: CASE EVENT DATE: 20241001
